FAERS Safety Report 6940869-X (Version None)
Quarter: 2010Q3

REPORT INFORMATION
  Report Type: 
  Country: None (occurrence: None)
  Receive Date: 20100825
  Receipt Date: 20100819
  Transmission Date: 20110219
  Serious: Yes (Hospitalization, Other)
  Sender: FDA-Public Use
  Company Number: NO-MERCK-1008NOR00004

PATIENT
  Age: 54 Year
  Sex: Male

DRUGS (13)
  1. ZOCOR [Suspect]
     Indication: HYPERCHOLESTEROLAEMIA
     Route: 048
  2. ZOCOR [Suspect]
     Route: 048
     Dates: end: 20100806
  3. DIGITOXIN [Concomitant]
     Route: 048
  4. AMIODARONE HYDROCHLORIDE [Suspect]
     Indication: ATRIAL FIBRILLATION
     Route: 048
     Dates: start: 20100201, end: 20100501
  5. LERCANIDIPINE HYDROCHLORIDE [Concomitant]
     Route: 048
  6. METOPROLOL TARTRATE [Concomitant]
     Route: 048
  7. WARFARIN SODIUM [Concomitant]
     Indication: ATRIAL FIBRILLATION
     Route: 048
  8. ALLOPURINOL [Concomitant]
     Route: 048
  9. BUMETANIDE [Concomitant]
     Route: 048
  10. METFORMIN [Concomitant]
     Indication: DIABETES MELLITUS
     Route: 048
  11. VALSARTAN [Concomitant]
     Route: 048
  12. GLIMEPIRIDE [Concomitant]
     Indication: DIABETES MELLITUS
     Route: 048
  13. ESCITALOPRAM OXALATE [Concomitant]
     Route: 048

REACTIONS (2)
  - MONOPARESIS [None]
  - RHABDOMYOLYSIS [None]
